FAERS Safety Report 7572730-4 (Version None)
Quarter: 2011Q2

REPORT INFORMATION
  Report Type: 
  Country: None (occurrence: None)
  Receive Date: 20110627
  Receipt Date: 20110610
  Transmission Date: 20111010
  Serious: Yes (Hospitalization, Other)
  Sender: FDA-Public Use
  Company Number: US-RANBAXY-2011RR-43980

PATIENT
  Sex: Female

DRUGS (5)
  1. ADVIL LIQUI-GELS [Suspect]
     Indication: PAIN
     Dosage: UNK
     Route: 048
     Dates: start: 20060101
  2. NAPROXEN [Suspect]
     Indication: PAIN
     Dosage: 500 MG, PRN
     Route: 048
     Dates: start: 20110301
  3. NORGESTIMATE AND ETHINYL ESTRADIOL [Concomitant]
     Indication: CONTRACEPTION
  4. LOSARTAN POTASSIUM AND HYDROCHLOROTHIAZIDE [Concomitant]
  5. NAPROXEN [Suspect]
     Indication: HEADACHE

REACTIONS (10)
  - ABDOMINAL PAIN UPPER [None]
  - NAUSEA [None]
  - HYPERSENSITIVITY [None]
  - DIARRHOEA [None]
  - DYSPNOEA [None]
  - PARAESTHESIA [None]
  - PRURITUS GENERALISED [None]
  - SWOLLEN TONGUE [None]
  - URTICARIA [None]
  - RASH [None]
